FAERS Safety Report 11968699 (Version 1)
Quarter: 2016Q1

REPORT INFORMATION
  Report Type: Report from Study
  Country: US (occurrence: US)
  Receive Date: 20160128
  Receipt Date: 20160128
  Transmission Date: 20160526
  Serious: No
  Sender: FDA-Public Use
  Company Number: US-AMGEN-USASL2016007193

PATIENT
  Age: 57 Year
  Sex: Male

DRUGS (1)
  1. ENBREL [Suspect]
     Active Substance: ETANERCEPT
     Indication: PSORIASIS
     Dosage: UNK
     Route: 065
     Dates: start: 201512

REACTIONS (6)
  - Arthralgia [Unknown]
  - Dizziness [Unknown]
  - Decreased appetite [Unknown]
  - Influenza like illness [Unknown]
  - Body temperature abnormal [Unknown]
  - Pain [Unknown]

NARRATIVE: CASE EVENT DATE: 20160118
